FAERS Safety Report 5676373-9 (Version None)
Quarter: 2008Q1

REPORT INFORMATION
  Report Type: 
  Country: None (occurrence: None)
  Receive Date: 20080321
  Receipt Date: 20080313
  Transmission Date: 20080703
  Serious: Yes (Other)
  Sender: FDA-Public Use
  Company Number: US-GENENTECH-256008

PATIENT
  Sex: Female
  Weight: 56.236 kg

DRUGS (3)
  1. NUTROPIN [Suspect]
     Indication: TURNER'S SYNDROME
     Dosage: 3.5 MG, 6/WEEK
     Route: 058
     Dates: start: 19990101
  2. PRIMAXIN [Concomitant]
     Indication: DRUG USE FOR UNKNOWN INDICATION
     Dosage: UNK, UNK
  3. ZANTAC [Concomitant]
     Indication: DRUG USE FOR UNKNOWN INDICATION

REACTIONS (1)
  - OSTEOCHONDROMA [None]
